FAERS Safety Report 7397495-0 (Version None)
Quarter: 2011Q2

REPORT INFORMATION
  Report Type: 
  Country: None (occurrence: None)
  Receive Date: 20110406
  Receipt Date: 20110331
  Transmission Date: 20111010
  Serious: Yes (Death, Other)
  Sender: FDA-Public Use
  Company Number: PHHY2011TW26835

PATIENT
  Age: 20 Year
  Sex: Female

DRUGS (5)
  1. GEMCITABINE [Suspect]
     Indication: ACUTE LYMPHOCYTIC LEUKAEMIA
  2. TOPOTECAN [Suspect]
     Indication: ACUTE LYMPHOCYTIC LEUKAEMIA
     Dosage: 1 MG/M2/ DAY, ON 2 -6 DAYS
  3. VINORELBINE [Suspect]
     Indication: ACUTE LYMPHOCYTIC LEUKAEMIA
     Dosage: 20 MG/M2, DAY, ON1, 8, 15 AND 22 DAYS
  4. DEXAMETHASONE [Suspect]
     Indication: ACUTE LYMPHOCYTIC LEUKAEMIA
  5. CISPLATIN [Suspect]
     Indication: ACUTE LYMPHOCYTIC LEUKAEMIA
     Dosage: 20 MG/M2/ DAY ON DAY 3

REACTIONS (12)
  - HYPERAMMONAEMIA [None]
  - SOMNOLENCE [None]
  - ALTERED STATE OF CONSCIOUSNESS [None]
  - NEUTROPENIA [None]
  - MEMORY IMPAIRMENT [None]
  - CSF GLUCOSE INCREASED [None]
  - CONVULSION [None]
  - LIVER DISORDER [None]
  - DISORIENTATION [None]
  - DEATH [None]
  - COMA SCALE ABNORMAL [None]
  - RESPIRATORY ALKALOSIS [None]
